FAERS Safety Report 9704335 (Version 1)
Quarter: 2013Q4

REPORT INFORMATION
  Report Type: Spontaneous
  Country: US (occurrence: US)
  Receive Date: 20131122
  Receipt Date: 20131122
  Transmission Date: 20140711
  Serious: Yes (Other)
  Sender: FDA-Public Use
  Company Number: US-MYLANLABS-2012S1020730

PATIENT
  Age: 66 Year
  Sex: Male
  Weight: 94.8 kg

DRUGS (4)
  1. ALLOPURINOL TABLETS, USP [Suspect]
     Indication: GOUT
     Route: 048
     Dates: start: 20120816, end: 20120821
  2. ALLOPURINOL TABLETS, USP [Suspect]
     Indication: GOUT
     Route: 048
     Dates: start: 20120822, end: 20120830
  3. COLCRYS [Suspect]
     Indication: GOUT
     Route: 048
     Dates: start: 20120816, end: 20120830
  4. ULORIC [Suspect]
     Indication: GOUT
     Route: 048
     Dates: start: 20120831, end: 20120927

REACTIONS (1)
  - Thrombocytopenia [Not Recovered/Not Resolved]
